FAERS Safety Report 4444874-7 (Version None)
Quarter: 2004Q3

REPORT INFORMATION
  Report Type: 
  Country: None (occurrence: None)
  Receive Date: 20040909
  Receipt Date: 20040831
  Transmission Date: 20050211
  Serious: Yes (Life-Threatening, Hospitalization, Other)
  Sender: FDA-Public Use
  Company Number: FRPFM-C-20040478

PATIENT
  Age: 54 Year
  Sex: Male

DRUGS (3)
  1. NAVELBINE [Suspect]
     Indication: NON-SMALL CELL LUNG CANCER METASTATIC
     Dosage: 60MGM2 CYCLIC
     Route: 048
     Dates: start: 20040518
  2. CARBOPLATIN [Suspect]
     Indication: NON-SMALL CELL LUNG CANCER METASTATIC
     Route: 042
     Dates: start: 20040518
  3. MORPHINE [Concomitant]
     Dosage: 60MG PER DAY
     Route: 048
     Dates: start: 20040727

REACTIONS (5)
  - ADRENAL INSUFFICIENCY [None]
  - ANAEMIA [None]
  - ELECTROLYTE IMBALANCE [None]
  - NAUSEA [None]
  - VOMITING [None]
